FAERS Safety Report 10263165 (Version 2)
Quarter: 2014Q2

REPORT INFORMATION
  Report Type: Report from Study
  Country: US (occurrence: US)
  Receive Date: 20140626
  Receipt Date: 20140626
  Transmission Date: 20141212
  Serious: Yes (Death)
  Sender: FDA-Public Use
  Company Number: US-MYLANLABS-2014S1004077

PATIENT
  Age: 64 Year
  Sex: Male
  Weight: 68.49 kg

DRUGS (24)
  1. CLOZAPINE TABLETS [Suspect]
     Indication: SCHIZOPHRENIA
     Dates: end: 2014
  2. CLOZAPINE TABLETS [Suspect]
     Indication: MENTAL RETARDATION
     Dates: end: 2014
  3. CLOZAPINE TABLETS [Suspect]
     Indication: SUICIDAL BEHAVIOUR
     Dates: end: 2014
  4. CLOZAPINE TABLETS [Suspect]
     Indication: SCHIZOPHRENIA
     Dates: end: 2014
  5. CLOZAPINE TABLETS [Suspect]
     Indication: MENTAL RETARDATION
     Dates: end: 2014
  6. CLOZAPINE TABLETS [Suspect]
     Indication: SUICIDAL BEHAVIOUR
     Dates: end: 2014
  7. LEVOTHYROXINE [Concomitant]
     Route: 048
  8. DIVALPROEX [Concomitant]
     Dosage: DR
     Route: 048
  9. OXYBUTYNIN [Concomitant]
     Route: 048
  10. REQUIP [Concomitant]
     Route: 048
  11. OMEPRAZOLE [Concomitant]
     Route: 048
  12. RISPERIDONE [Concomitant]
     Route: 048
  13. CYMBALTA [Concomitant]
     Route: 048
  14. FLOMAX /01280302/ [Concomitant]
     Route: 048
  15. LITHIUM [Concomitant]
     Dosage: ER
     Route: 048
  16. DOXAZOSIN [Concomitant]
     Route: 048
  17. CYCLOBENZAPRINE [Concomitant]
     Route: 048
  18. SENNA [Concomitant]
     Route: 048
  19. CITALOPRAM [Concomitant]
     Route: 048
  20. AMBIEN [Concomitant]
     Route: 048
  21. LORAZEPAM [Concomitant]
     Route: 048
  22. MELOXICAM [Concomitant]
     Route: 048
  23. FINASTERIDE [Concomitant]
     Route: 048
  24. ZOLPIDEM [Concomitant]
     Route: 048

REACTIONS (1)
  - Fall [Fatal]
